FAERS Safety Report 9153387 (Version 1)
Quarter: 2013Q1

REPORT INFORMATION
  Report Type: Spontaneous
  Country: CN (occurrence: CN)
  Receive Date: 20130311
  Receipt Date: 20130311
  Transmission Date: 20140127
  Serious: Yes (Other)
  Sender: FDA-Public Use
  Company Number: CN-JNJFOC-20130300864

PATIENT
  Sex: Female
  Weight: 13.5 kg

DRUGS (2)
  1. MOTRIN [Suspect]
     Route: 048
  2. MOTRIN [Suspect]
     Indication: PYREXIA
     Route: 048
     Dates: start: 20111021, end: 20111102

REACTIONS (1)
  - Hepatic function abnormal [Recovering/Resolving]
